FAERS Safety Report 5810133-0 (Version None)
Quarter: 2008Q3

REPORT INFORMATION
  Report Type: 
  Country: None (occurrence: None)
  Receive Date: 20080715
  Receipt Date: 20070904
  Transmission Date: 20090109
  Serious: No
  Sender: FDA-Public Use
  Company Number: A0664035A

PATIENT
  Age: 51 Year
  Sex: Female

DRUGS (5)
  1. IMITREX [Suspect]
     Indication: MIGRAINE
     Dosage: 100MG AS REQUIRED
     Route: 048
  2. PAXIL [Concomitant]
  3. CIMETIDINE [Concomitant]
  4. PROPRANOLOL [Concomitant]
  5. ALLEGRA [Concomitant]

REACTIONS (1)
  - ARTHRALGIA [None]
